FAERS Safety Report 21798035 (Version 1)
Quarter: 2022Q4

REPORT INFORMATION
  Report Type: Report from Study
  Country: UY (occurrence: UY)
  Receive Date: 20221230
  Receipt Date: 20221230
  Transmission Date: 20230113
  Serious: Yes (Hospitalization, Other)
  Sender: FDA-Public Use
  Company Number: UY-ABBVIE-4252875

PATIENT
  Age: 58 Year
  Sex: Male

DRUGS (1)
  1. VENETOCLAX [Suspect]
     Active Substance: VENETOCLAX
     Indication: Chronic lymphocytic leukaemia
     Dosage: FORM STRENGTH 100 MILLIGRAM
     Route: 048
     Dates: start: 20200801, end: 20220831

REACTIONS (2)
  - Road traffic accident [Recovering/Resolving]
  - Limb injury [Recovering/Resolving]

NARRATIVE: CASE EVENT DATE: 20220913
